FAERS Safety Report 7789548-X (Version None)
Quarter: 2011Q3

REPORT INFORMATION
  Report Type: 
  Country: None (occurrence: None)
  Receive Date: 20110930
  Receipt Date: 20110923
  Transmission Date: 20111222
  Serious: Yes (Other)
  Sender: FDA-Public Use
  Company Number: AU-B.I. PHARMACEUTICALS,INC./RIDGEFIELD-2011-AU-01199AU

PATIENT
  Sex: Male

DRUGS (4)
  1. COLGOUT [Concomitant]
  2. DIGOXIN [Concomitant]
  3. PRADAXA [Suspect]
     Indication: ATRIAL FIBRILLATION
     Dosage: 300 MG
     Dates: start: 20110819, end: 20110906
  4. CALTRATE PLUS [Concomitant]

REACTIONS (2)
  - RECTAL HAEMORRHAGE [None]
  - MALIGNANT TUMOUR EXCISION [None]
